FAERS Safety Report 9712299 (Version 1)
Quarter: 2013Q4

REPORT INFORMATION
  Report Type: Spontaneous
  Country: US (occurrence: None)
  Receive Date: 20131125
  Receipt Date: 20131125
  Transmission Date: 20140711
  Serious: Yes (Disabling)
  Sender: FDA-Public Use
  Company Number: None

PATIENT
  Age: 71 Year
  Sex: Female
  Weight: 68.04 kg

DRUGS (1)
  1. SIMVASTATIN [Suspect]
     Indication: BLOOD CHOLESTEROL INCREASED
     Route: 048
     Dates: start: 20100909, end: 20110425

REACTIONS (9)
  - Back pain [None]
  - Fatigue [None]
  - Musculoskeletal stiffness [None]
  - Pain [None]
  - Discomfort [None]
  - Movement disorder [None]
  - Vitamin D deficiency [None]
  - Sinusitis [None]
  - Quality of life decreased [None]
